FAERS Safety Report 7076539-X (Version None)
Quarter: 2010Q4

REPORT INFORMATION
  Report Type: 
  Country: None (occurrence: None)
  Receive Date: 20101101
  Receipt Date: 20101025
  Transmission Date: 20110411
  Serious: Yes (Other)
  Sender: FDA-Public Use
  Company Number: JP-PFIZER INC-2010135506

PATIENT

DRUGS (1)
  1. AZULFIDINE [Suspect]
     Dosage: UNK
     Route: 048

REACTIONS (2)
  - AGRANULOCYTOSIS [None]
  - SEPSIS [None]
